FAERS Safety Report 23621887 (Version 1)
Quarter: 2024Q1

REPORT INFORMATION
  Report Type: Spontaneous
  Country: US (occurrence: US)
  Receive Date: 20240312
  Receipt Date: 20240312
  Transmission Date: 20240409
  Serious: No
  Sender: FDA-Public Use
  Company Number: US-Mission Pharmacal Company-2154287

PATIENT
  Age: 76 Year
  Sex: Female

DRUGS (5)
  1. THIOLA EC [Suspect]
     Active Substance: TIOPRONIN
     Route: 048
     Dates: start: 20230108
  2. KEPPRA [Concomitant]
     Active Substance: LEVETIRACETAM
  3. FERROUS SULFATE [Concomitant]
     Active Substance: FERROUS SULFATE
  4. LAMOTRIGINE [Concomitant]
     Active Substance: LAMOTRIGINE
  5. ATORVASTATIN [Concomitant]
     Active Substance: ATORVASTATIN

REACTIONS (1)
  - Insomnia [Unknown]
